FAERS Safety Report 4415911-0 (Version None)
Quarter: 2004Q3

REPORT INFORMATION
  Report Type: 
  Country: None (occurrence: None)
  Receive Date: 20040805
  Receipt Date: 20040528
  Transmission Date: 20050211
  Serious: No
  Sender: FDA-Public Use
  Company Number: US-GLAXOSMITHKLINE-A0512628A

PATIENT
  Age: 87 Year
  Sex: Female

DRUGS (3)
  1. AVANDAMET [Suspect]
     Dosage: 1TAB UNKNOWN
     Route: 048
  2. LIPITOR [Concomitant]
  3. LANTUS [Concomitant]

REACTIONS (2)
  - DYSPNOEA [None]
  - JOINT SWELLING [None]
